FAERS Safety Report 8868400 (Version 1)
Quarter: 2012Q4

REPORT INFORMATION
  Report Type: 
  Country: US (occurrence: US)
  Receive Date: 20121026
  Receipt Date: 20121026
  Transmission Date: 20130627
  Serious: No
  Sender: FDA-Public Use
  Company Number: US-AMGEN-USASP2012041861

PATIENT
  Sex: Female

DRUGS (3)
  1. ENBREL [Suspect]
     Indication: RHEUMATOID ARTHRITIS
     Dosage: 50 mg, qwk
     Dates: start: 20110118, end: 201107
  2. ENBREL [Suspect]
     Indication: FIBROMYALGIA
  3. ENBREL [Suspect]
     Indication: SCOLIOSIS

REACTIONS (3)
  - Spinal osteoarthritis [Not Recovered/Not Resolved]
  - Body height decreased [Not Recovered/Not Resolved]
  - Arthralgia [Not Recovered/Not Resolved]
